FAERS Safety Report 17984399 (Version 2)
Quarter: 2021Q1

REPORT INFORMATION
  Report Type: Spontaneous
  Country: US (occurrence: US)
  Receive Date: 20200706
  Receipt Date: 20210216
  Transmission Date: 20210419
  Serious: Yes (Hospitalization)
  Sender: FDA-Public Use
  Company Number: US-SHIRE-US202021328

PATIENT
  Sex: Female

DRUGS (4)
  1. GATTEX [Suspect]
     Active Substance: TEDUGLUTIDE\WATER
     Indication: PRODUCT USED FOR UNKNOWN INDICATION
     Dosage: 0.225 INJ, 1X/DAY:QD
     Route: 058
     Dates: start: 20200801
  2. GATTEX [Suspect]
     Active Substance: TEDUGLUTIDE\WATER
     Indication: PRODUCT USED FOR UNKNOWN INDICATION
     Dosage: 0.225 INJ, 1X/DAY:QD
     Route: 058
     Dates: start: 20200801
  3. GATTEX [Suspect]
     Active Substance: TEDUGLUTIDE\WATER
     Indication: PRODUCT USED FOR UNKNOWN INDICATION
     Dosage: 0.225 INJ, 1X/DAY:QD
     Route: 058
     Dates: start: 20200801
  4. GATTEX [Suspect]
     Active Substance: TEDUGLUTIDE\WATER
     Indication: PRODUCT USED FOR UNKNOWN INDICATION
     Dosage: 0.225 INJ, 1X/DAY:QD
     Route: 058
     Dates: start: 20200801

REACTIONS (3)
  - Swelling [Unknown]
  - Hospitalisation [Unknown]
  - Nausea [Unknown]
